FAERS Safety Report 12325645 (Version 1)
Quarter: 2016Q2

REPORT INFORMATION
  Report Type: Other
  Country: GB (occurrence: GB)
  Receive Date: 20160503
  Receipt Date: 20160503
  Transmission Date: 20160815
  Serious: Yes (Other)
  Sender: FDA-Public Use
  Company Number: GB-LUPIN PHARMACEUTICALS INC.-E2B_00004009

PATIENT
  Age: 31 Year
  Sex: Male
  Weight: 81.5 kg

DRUGS (4)
  1. QUETIAPINE. [Suspect]
     Active Substance: QUETIAPINE
     Dosage: DOSE REDUCED
     Route: 048
     Dates: start: 201308, end: 201406
  2. QUETIAPINE. [Suspect]
     Active Substance: QUETIAPINE
     Indication: PSYCHOTIC DISORDER
     Route: 048
     Dates: start: 20130115, end: 201308
  3. CITALOPRAM [Suspect]
     Active Substance: CITALOPRAM HYDROBROMIDE
     Indication: PRODUCT USED FOR UNKNOWN INDICATION
     Route: 048
     Dates: start: 20140717, end: 20141218
  4. QUETIAPINE. [Suspect]
     Active Substance: QUETIAPINE
     Dosage: DOSE REDUCED
     Route: 048
     Dates: start: 201406, end: 20140616

REACTIONS (1)
  - Weight increased [Recovering/Resolving]
